FAERS Safety Report 7222678-X (Version None)
Quarter: 2011Q1

REPORT INFORMATION
  Report Type: 
  Country: None (occurrence: None)
  Receive Date: 20110106
  Receipt Date: 20110106
  Transmission Date: 20110831
  Serious: Yes (Hospitalization)
  Sender: FDA-Public Use
  Company Number: None

PATIENT
  Sex: Male
  Weight: 129.5 kg

DRUGS (1)
  1. XIFAXAN [Suspect]
     Indication: HEPATIC ENCEPHALOPATHY
     Dosage: 1 TABLET 2X'S A DAY
     Dates: start: 20100601, end: 20101020

REACTIONS (10)
  - DISORIENTATION [None]
  - HALLUCINATION, VISUAL [None]
  - IMPAIRED WORK ABILITY [None]
  - SYNCOPE [None]
  - MUSCLE SPASMS [None]
  - CONFUSIONAL STATE [None]
  - IMPAIRED DRIVING ABILITY [None]
  - DISTURBANCE IN ATTENTION [None]
  - UNEVALUABLE EVENT [None]
  - COGNITIVE DISORDER [None]
